FAERS Safety Report 15884874 (Version 1)
Quarter: 2019Q1

REPORT INFORMATION
  Report Type: Spontaneous
  Country: US (occurrence: US)
  Receive Date: 20190104
  Receipt Date: 20190104
  Transmission Date: 20190417
  Serious: No
  Sender: FDA-Public Use
  Company Number: None

PATIENT
  Age: 50 Year
  Sex: Female

DRUGS (1)
  1. ENBREL [Suspect]
     Active Substance: ETANERCEPT
     Indication: PSORIASIS
     Dosage: INJECT 50MG SUBCUTANEOUSLY  TWO TIMES A  WEEK 72-96 HOURS APART  FOR 3 MONTHS AS DIRECTED?
     Route: 058
     Dates: start: 201806

REACTIONS (2)
  - Nail infection [None]
  - Therapy cessation [None]
